FAERS Safety Report 10538569 (Version 2)
Quarter: 2014Q4

REPORT INFORMATION
  Report Type: Spontaneous
  Country: US (occurrence: US)
  Receive Date: 20141023
  Receipt Date: 20141023
  Transmission Date: 20150529
  Serious: Yes (Hospitalization, Other)
  Sender: FDA-Public Use
  Company Number: US-GLAXOSMITHKLINE-A0873056A

PATIENT
  Sex: Male

DRUGS (1)
  1. AVANDIA [Suspect]
     Active Substance: ROSIGLITAZONE MALEATE
     Indication: DIABETES MELLITUS
     Route: 048
     Dates: start: 2003, end: 2009

REACTIONS (6)
  - Bundle branch block right [Unknown]
  - Pleural effusion [Unknown]
  - Atrial flutter [Unknown]
  - Cardiac failure congestive [Not Recovered/Not Resolved]
  - Supraventricular tachycardia [Unknown]
  - Cardiomegaly [Unknown]
